FAERS Safety Report 12598016 (Version 1)
Quarter: 2016Q3

REPORT INFORMATION
  Report Type: Spontaneous
  Country: US (occurrence: None)
  Receive Date: 20160726
  Receipt Date: 20160726
  Transmission Date: 20161109
  Serious: Yes (Hospitalization, Disabling)
  Sender: FDA-Public Use
  Company Number: None

PATIENT
  Age: 55 Year
  Sex: Male
  Weight: 136.08 kg

DRUGS (8)
  1. RISPERDAL [Suspect]
     Active Substance: RISPERIDONE
     Indication: PSYCHOTIC DISORDER
     Dosage: 3MG IN AM 3MG IN PM TWICE DAILY BY MOUTH
     Route: 048
     Dates: start: 199404, end: 200410
  2. ATIVAN [Concomitant]
     Active Substance: LORAZEPAM
  3. LISINOPRIL. [Concomitant]
     Active Substance: LISINOPRIL
  4. PRILOSEC [Concomitant]
     Active Substance: OMEPRAZOLE MAGNESIUM
  5. LOPRESSOR [Concomitant]
     Active Substance: METOPROLOL TARTRATE
  6. FISH OIL [Concomitant]
     Active Substance: FISH OIL
  7. RISPERDAL [Concomitant]
     Active Substance: RISPERIDONE
  8. RISPERDAL CONSTA [Concomitant]
     Active Substance: RISPERIDONE

REACTIONS (5)
  - Malaise [None]
  - Genital pain [None]
  - Nervous system disorder [None]
  - Affective disorder [None]
  - Hallucination [None]
